FAERS Safety Report 20198505 (Version 2)
Quarter: 2022Q1

REPORT INFORMATION
  Report Type: Spontaneous
  Country: TW (occurrence: TW)
  Receive Date: 20211217
  Receipt Date: 20220103
  Transmission Date: 20220423
  Serious: Yes (Hospitalization, Other)
  Sender: FDA-Public Use
  Company Number: TW-ASTELLAS-2021US048440

PATIENT
  Age: 70 Year
  Sex: Male

DRUGS (1)
  1. XTANDI [Suspect]
     Active Substance: ENZALUTAMIDE
     Indication: Prostate cancer metastatic
     Route: 048
     Dates: end: 20211213

REACTIONS (4)
  - Pyrexia [Unknown]
  - Sepsis [Unknown]
  - Ill-defined disorder [Unknown]
  - Coma [Unknown]

NARRATIVE: CASE EVENT DATE: 20211208
